FAERS Safety Report 24314234 (Version 1)
Quarter: 2024Q3

REPORT INFORMATION
  Report Type: Spontaneous
  Country: PH (occurrence: PH)
  Receive Date: 20240912
  Receipt Date: 20240912
  Transmission Date: 20241016
  Serious: Yes (Death, Life-Threatening, Hospitalization, Disabling, Other)
  Sender: BRISTOL MYERS SQUIBB
  Company Number: PH-BRISTOL-MYERS SQUIBB COMPANY-2024-138301

PATIENT
  Age: 28 Year
  Sex: Male

DRUGS (1)
  1. SPRYCEL [Suspect]
     Active Substance: DASATINIB
     Indication: Chronic myeloid leukaemia
     Dates: start: 20240529, end: 20240607

REACTIONS (4)
  - Haemorrhage intracranial [Fatal]
  - Encephalopathy [Unknown]
  - Thrombocytopenia [Unknown]
  - Chronic myeloid leukaemia [Unknown]

NARRATIVE: CASE EVENT DATE: 20240605
